FAERS Safety Report 8042801-7 (Version None)
Quarter: 2012Q1

REPORT INFORMATION
  Report Type: 
  Country: None (occurrence: None)
  Receive Date: 20120112
  Receipt Date: 20111122
  Transmission Date: 20120608
  Serious: Yes (Hospitalization)
  Sender: FDA-Public Use
  Company Number: JP-EISAI INC-E2080-00404-CLI-JP

PATIENT
  Sex: Male
  Weight: 19 kg

DRUGS (11)
  1. PHENOBARBITAL TAB [Interacting]
     Route: 048
     Dates: start: 20101123, end: 20110817
  2. RUFINAMIDE [Interacting]
     Route: 048
     Dates: start: 20110503, end: 20110504
  3. RUFINAMIDE [Interacting]
     Route: 048
     Dates: start: 20110509
  4. VALPROATE SODIUM [Interacting]
     Indication: LENNOX-GASTAUT SYNDROME
     Route: 048
     Dates: start: 20100607, end: 20110816
  5. PHENOBARBITAL TAB [Interacting]
     Indication: LENNOX-GASTAUT SYNDROME
     Route: 048
     Dates: start: 20010201
  6. RUFINAMIDE [Suspect]
     Indication: LENNOX-GASTAUT SYNDROME
     Route: 048
     Dates: start: 20110406, end: 20110502
  7. RUFINAMIDE [Interacting]
     Route: 048
     Dates: start: 20110505, end: 20110506
  8. VALPROATE SODIUM [Interacting]
     Route: 048
     Dates: start: 20110817, end: 20110818
  9. VALPROATE SODIUM [Interacting]
     Route: 048
     Dates: start: 20110819
  10. RUFINAMIDE [Interacting]
     Route: 048
     Dates: start: 20110507, end: 20110508
  11. ZONISAMIDE [Concomitant]
     Indication: LENNOX-GASTAUT SYNDROME
     Route: 048
     Dates: start: 20091001

REACTIONS (2)
  - DRUG INTERACTION [None]
  - STATUS EPILEPTICUS [None]
